FAERS Safety Report 9461969 (Version 1)
Quarter: 2013Q3

REPORT INFORMATION
  Report Type: Spontaneous
  Country: GB (occurrence: GB)
  Receive Date: 20130816
  Receipt Date: 20130816
  Transmission Date: 20140515
  Serious: Yes (Hospitalization, Other)
  Sender: FDA-Public Use
  Company Number: GB-PFIZER INC-2013233827

PATIENT
  Age: 9 Year
  Sex: Male
  Weight: 38 kg

DRUGS (16)
  1. TAZOCIN [Suspect]
     Indication: CYSTIC FIBROSIS
     Route: 042
     Dates: start: 20130109, end: 20130114
  2. CREON [Concomitant]
  3. VITAMIN A AND D [Concomitant]
  4. TOBI [Concomitant]
  5. COLOMYCIN [Concomitant]
  6. FLUCLOXACILLIN [Concomitant]
  7. AZITHROMYCIN [Concomitant]
  8. CIPROFLOXACIN [Concomitant]
  9. AUGMENTIN DUO FORTE [Concomitant]
  10. DEOXYRIBONUCLEASE HUMAN [Concomitant]
  11. PREDNISOLONE [Concomitant]
  12. ITRACONAZOLE [Concomitant]
  13. URSODEOXYCHOLIC ACID [Concomitant]
  14. SALBUTAMOL [Concomitant]
  15. SERETIDE [Concomitant]
  16. MONTELUKAST [Concomitant]

REACTIONS (4)
  - Rash generalised [Recovered/Resolved]
  - Pyrexia [Recovered/Resolved]
  - Condition aggravated [Recovered/Resolved]
  - Drug reaction with eosinophilia and systemic symptoms [Unknown]
